FAERS Safety Report 5935855-2 (Version None)
Quarter: 2008Q4

REPORT INFORMATION
  Report Type: 
  Country: None (occurrence: None)
  Receive Date: 20081030
  Receipt Date: 20081015
  Transmission Date: 20090506
  Serious: Yes (Hospitalization)
  Sender: FDA-Public Use
  Company Number: FR-ELI_LILLY_AND_COMPANY-FR200809002387

PATIENT
  Age: 84 Year
  Sex: Female

DRUGS (9)
  1. FORTEO [Suspect]
     Indication: OSTEOPOROSIS
     Dosage: 20 UG, UNKNOWN
     Route: 058
     Dates: start: 20070517
  2. DIFFU K [Concomitant]
     Dosage: 2 D/F, DAILY (1/D)
     Route: 048
  3. DIFFU K [Concomitant]
     Dosage: 1000 MG, DAILY (1/D)
     Route: 065
  4. LIPANTHYL [Concomitant]
     Dosage: 145 MG, DAILY (1/D)
     Route: 048
  5. LIPANTHYL [Concomitant]
     Dosage: 140 MG, DAILY (1/D)
     Route: 065
  6. TEMESTA [Concomitant]
     Dosage: 1 MG, DAILY
     Route: 048
  7. CACIT D3 [Concomitant]
     Dosage: UNK(1 BAG), DAILY (1/D)
     Route: 048
  8. ACETAMINOPHEN AND CODEINE PHOSPHATE [Concomitant]
     Dosage: 2 TO3 D/F, DAILY (1/D)
     Route: 048
  9. PRACTAZIN [Concomitant]
     Dosage: 0.5 D/F, DAILY (1/D)
     Route: 065

REACTIONS (2)
  - DYSPNOEA [None]
  - PULMONARY EMBOLISM [None]
